FAERS Safety Report 6410477-8 (Version None)
Quarter: 2009Q4

REPORT INFORMATION
  Report Type: 
  Country: None (occurrence: None)
  Receive Date: 20091022
  Receipt Date: 20091015
  Transmission Date: 20100525
  Serious: Yes (Disabling, Other)
  Sender: FDA-Public Use
  Company Number: US-MERCK-0902USA00148

PATIENT
  Sex: Female

DRUGS (2)
  1. FOSAMAX [Suspect]
     Route: 048
     Dates: start: 20040101, end: 20070101
  2. FOSAMAX [Suspect]
     Route: 065
     Dates: start: 20010529

REACTIONS (1)
  - OSTEONECROSIS [None]
